FAERS Safety Report 11318574 (Version 3)
Quarter: 2016Q1

REPORT INFORMATION
  Report Type: Spontaneous
  Country: US (occurrence: US)
  Receive Date: 20150729
  Receipt Date: 20160118
  Transmission Date: 20160525
  Serious: Yes (Death, Life-Threatening, Hospitalization)
  Sender: FDA-Public Use
  Company Number: US-ROCHE-ITM201506IM017715

PATIENT
  Age: 61 Year
  Sex: Female
  Weight: 81.72 kg

DRUGS (1)
  1. ESBRIET [Suspect]
     Active Substance: PIRFENIDONE
     Indication: IDIOPATHIC PULMONARY FIBROSIS
     Dosage: 3 CAPS 3X A DAY
     Route: 048
     Dates: start: 20150506

REACTIONS (4)
  - Dyspnoea [Unknown]
  - Pneumonia [Recovering/Resolving]
  - Death [Fatal]
  - Acute respiratory failure [Recovered/Resolved]

NARRATIVE: CASE EVENT DATE: 20151217
